FAERS Safety Report 4811321-2 (Version None)
Quarter: 2005Q4

REPORT INFORMATION
  Report Type: 
  Country: None (occurrence: None)
  Receive Date: 20051027
  Receipt Date: 20051018
  Transmission Date: 20060501
  Serious: Yes (Other)
  Sender: FDA-Public Use
  Company Number: PHHO2005AT16395

PATIENT
  Sex: Male

DRUGS (2)
  1. LESCOL [Suspect]
     Indication: HYPERCHOLESTEROLAEMIA
  2. THROMBO ASS [Concomitant]

REACTIONS (2)
  - CONSTIPATION [None]
  - MYALGIA [None]
